FAERS Safety Report 13758474 (Version 1)
Quarter: 2017Q3

REPORT INFORMATION
  Report Type: Spontaneous
  Country: US (occurrence: US)
  Receive Date: 20170715
  Receipt Date: 20170715
  Transmission Date: 20171127
  Serious: Yes (Hospitalization)
  Sender: FDA-Public Use
  Company Number: None

PATIENT
  Age: 68 Year
  Sex: Male

DRUGS (1)
  1. SULFAMETHOXAZOLE/TRIMETHOPRIM [Suspect]
     Active Substance: SULFAMETHOXAZOLE\TRIMETHOPRIM
     Indication: CELLULITIS
     Dosage: 800/160 MG BID PO
     Route: 048
     Dates: start: 20170617, end: 20170627

REACTIONS (3)
  - Acute kidney injury [None]
  - Blood creatine increased [None]
  - Blood urea increased [None]

NARRATIVE: CASE EVENT DATE: 20170706
